FAERS Safety Report 6618123-5 (Version None)
Quarter: 2010Q1

REPORT INFORMATION
  Report Type: 
  Country: None (occurrence: None)
  Receive Date: 20100308
  Receipt Date: 20100225
  Transmission Date: 20100710
  Serious: Yes (Hospitalization)
  Sender: FDA-Public Use
  Company Number: ES-AMGEN-US396011

PATIENT
  Age: 49 Year
  Sex: Female

DRUGS (3)
  1. ENBREL [Suspect]
     Indication: PSORIATIC ARTHROPATHY
     Dosage: UNKNOWN
     Route: 058
     Dates: start: 20091229, end: 20100114
  2. EUTHYROX [Concomitant]
     Indication: HYPOTHYROIDISM
     Dosage: UNKNOWN
  3. METHOTREXATE [Concomitant]
     Dosage: UNKNOWN

REACTIONS (6)
  - FEELING HOT [None]
  - INJECTION SITE ERYTHEMA [None]
  - INJECTION SITE PRURITUS [None]
  - MALAISE [None]
  - PRURITUS GENERALISED [None]
  - RASH [None]
